FAERS Safety Report 7048095-3 (Version None)
Quarter: 2010Q4

REPORT INFORMATION
  Report Type: 
  Country: None (occurrence: None)
  Receive Date: 20101015
  Receipt Date: 20100909
  Transmission Date: 20110411
  Serious: Yes (Hospitalization, Disabling, Other)
  Sender: FDA-Public Use
  Company Number: US-BAXTER-2009BH015131

PATIENT
  Age: 64 Year
  Sex: Male
  Weight: 83 kg

DRUGS (18)
  1. HEPARIN SODIUM INJECTION [Suspect]
     Indication: HEART TRANSPLANT
     Route: 042
     Dates: start: 20071024, end: 20071024
  2. HEPARIN SODIUM INJECTION [Suspect]
     Route: 042
     Dates: start: 20071024, end: 20071024
  3. HEPARIN SODIUM INJECTION [Suspect]
     Route: 042
     Dates: start: 20071024, end: 20071024
  4. HEPARIN SODIUM INJECTION [Suspect]
     Route: 042
     Dates: start: 20071024, end: 20071024
  5. ALBUTEROL SULFATE [Concomitant]
     Indication: PRODUCT USED FOR UNKNOWN INDICATION
     Route: 055
  6. ADVAIR DISKUS 100/50 [Concomitant]
     Indication: PRODUCT USED FOR UNKNOWN INDICATION
     Route: 055
  7. VIAGRA [Concomitant]
     Indication: PRODUCT USED FOR UNKNOWN INDICATION
     Route: 065
  8. FUROSEMIDE [Concomitant]
     Indication: PRODUCT USED FOR UNKNOWN INDICATION
     Route: 065
  9. SOTALOL [Concomitant]
     Indication: PRODUCT USED FOR UNKNOWN INDICATION
     Route: 065
  10. DIGOXIN [Concomitant]
     Indication: PRODUCT USED FOR UNKNOWN INDICATION
     Route: 065
  11. INSPRA [Concomitant]
     Indication: PRODUCT USED FOR UNKNOWN INDICATION
     Route: 065
  12. EZETIMIBE [Concomitant]
     Indication: PRODUCT USED FOR UNKNOWN INDICATION
     Route: 065
  13. SIMVASTATIN [Concomitant]
     Indication: PRODUCT USED FOR UNKNOWN INDICATION
     Route: 065
  14. ASPIRIN [Concomitant]
     Indication: PRODUCT USED FOR UNKNOWN INDICATION
     Route: 065
  15. MULTI-VIT [Concomitant]
     Indication: PRODUCT USED FOR UNKNOWN INDICATION
     Route: 065
  16. ATACAND [Concomitant]
     Indication: PRODUCT USED FOR UNKNOWN INDICATION
     Route: 065
  17. DUONEB [Concomitant]
     Indication: PRODUCT USED FOR UNKNOWN INDICATION
     Route: 065
  18. MUCINEX [Concomitant]
     Indication: PRODUCT USED FOR UNKNOWN INDICATION
     Route: 065

REACTIONS (13)
  - ACIDOSIS [None]
  - CIRCULATORY COLLAPSE [None]
  - GASTROINTESTINAL DISORDER [None]
  - HEPARIN-INDUCED THROMBOCYTOPENIA [None]
  - HYPOAESTHESIA [None]
  - HYPOTENSION [None]
  - ILEAL GANGRENE [None]
  - INTESTINAL ISCHAEMIA [None]
  - LARGE INTESTINE PERFORATION [None]
  - LOCALISED INFECTION [None]
  - PERIPHERAL ISCHAEMIA [None]
  - PERONEAL NERVE PALSY [None]
  - RENAL FAILURE ACUTE [None]
